FAERS Safety Report 8977984 (Version 1)
Quarter: 2012Q4

REPORT INFORMATION
  Report Type: 
  Country: US (occurrence: US)
  Receive Date: 20121219
  Receipt Date: 20121219
  Transmission Date: 20130627
  Serious: Yes (Hospitalization)
  Sender: FDA-Public Use
  Company Number: US-PFIZER INC-2012320488

PATIENT
  Sex: Male

DRUGS (2)
  1. AMIODARONE HCL [Suspect]
     Dosage: UNK
  2. PLAVIX [Suspect]
     Dosage: UNK
     Route: 048

REACTIONS (2)
  - Cardiac disorder [Unknown]
  - Implantable defibrillator insertion [Unknown]
